FAERS Safety Report 9495862 (Version 2)
Quarter: 2014Q1

REPORT INFORMATION
  Report Type: Spontaneous
  Country: US (occurrence: US)
  Receive Date: 20130903
  Receipt Date: 20140203
  Transmission Date: 20141002
  Serious: No
  Sender: FDA-Public Use
  Company Number: US-009507513-1308USA009435

PATIENT
  Age: 31 Year
  Sex: Female
  Weight: 78.46 kg

DRUGS (1)
  1. ASMANEX TWISTHALER [Suspect]
     Dosage: 1 PUFF DAILY
     Route: 055
     Dates: start: 20130802

REACTIONS (3)
  - Drug dose omission [Unknown]
  - Product quality issue [Recovered/Resolved]
  - No adverse event [Unknown]
